FAERS Safety Report 19802118 (Version 3)
Quarter: 2021Q4

REPORT INFORMATION
  Report Type: Spontaneous
  Country: JP (occurrence: JP)
  Receive Date: 20210908
  Receipt Date: 20211019
  Transmission Date: 20220303
  Serious: Yes (Other)
  Sender: FDA-Public Use
  Company Number: JP-DSJP-DSJ-2021-128603

PATIENT
  Age: 81 Year
  Sex: Female

DRUGS (3)
  1. DENOSUMAB [Suspect]
     Active Substance: DENOSUMAB
     Indication: Osteoporosis
     Dosage: 60 MILLIGRAM, Q6MO
     Route: 058
     Dates: start: 20190626, end: 20210222
  2. ELDECALCITOL [Concomitant]
     Active Substance: ELDECALCITOL
     Indication: Osteoporosis
     Dosage: 0.75 UG, QD
     Route: 048
     Dates: start: 20190626, end: 20210729
  3. RISEDRONATE SODIUM [Concomitant]
     Active Substance: RISEDRONATE SODIUM
     Indication: Osteoporosis
     Dosage: 17.5 MG, ONCE EVERY 1 WK
     Route: 048
     Dates: end: 20190619

REACTIONS (1)
  - Cholesteatoma [Not Recovered/Not Resolved]

NARRATIVE: CASE EVENT DATE: 20210818
